FAERS Safety Report 8136957-5 (Version None)
Quarter: 2012Q1

REPORT INFORMATION
  Report Type: 
  Country: None (occurrence: None)
  Receive Date: 20120214
  Receipt Date: 20120207
  Transmission Date: 20120608
  Serious: Yes (Death, Hospitalization)
  Sender: FDA-Public Use
  Company Number: US-AMGEN-USASP2012008483

PATIENT
  Age: 73 Year
  Sex: Male
  Weight: 58.503 kg

DRUGS (1)
  1. PROCRIT [Suspect]
     Indication: ANAEMIA
     Dosage: UNK
     Dates: start: 20110517, end: 20120116

REACTIONS (4)
  - FLUID RETENTION [None]
  - CARDIAC FAILURE CONGESTIVE [None]
  - WEIGHT DECREASED [None]
  - ADVERSE EVENT [None]
